FAERS Safety Report 6519233-3 (Version None)
Quarter: 2009Q4

REPORT INFORMATION
  Report Type: 
  Country: None (occurrence: None)
  Receive Date: 20091228
  Receipt Date: 20091216
  Transmission Date: 20100525
  Serious: Yes (Other)
  Sender: FDA-Public Use
  Company Number: PHHY2009FR56967

PATIENT
  Age: 43 Year
  Sex: Male

DRUGS (3)
  1. VOLTAREN [Suspect]
     Indication: BACK PAIN
     Dosage: 75 MG, BID
     Route: 048
     Dates: start: 20091214
  2. PARACETAMOL [Concomitant]
  3. MYOLASTAN [Concomitant]

REACTIONS (5)
  - FATIGUE [None]
  - HEADACHE [None]
  - LOSS OF CONSCIOUSNESS [None]
  - NAUSEA [None]
  - VISUAL IMPAIRMENT [None]
